FAERS Safety Report 25253955 (Version 2)
Quarter: 2025Q2

REPORT INFORMATION
  Report Type: Report from Study
  Country: US (occurrence: US)
  Receive Date: 20250430
  Receipt Date: 20250516
  Transmission Date: 20250716
  Serious: Yes (Hospitalization)
  Sender: ABBVIE
  Company Number: US-ABBVIE-6256872

PATIENT
  Age: 39 Year
  Sex: Female

DRUGS (3)
  1. RINVOQ [Suspect]
     Active Substance: UPADACITINIB
     Indication: Colitis ulcerative
     Dosage: FOR 8 WEEKS STRENGTH 15MG
     Route: 048
     Dates: start: 20240905
  2. RINVOQ [Suspect]
     Active Substance: UPADACITINIB
     Indication: Colitis ulcerative
     Dosage: STRENGTH 15MG, MISSED DOSE
     Route: 048
     Dates: end: 20250422
  3. RINVOQ [Suspect]
     Active Substance: UPADACITINIB
     Indication: Colitis ulcerative
     Dosage: STRENGTH 15MG
     Route: 048
     Dates: start: 202504

REACTIONS (5)
  - Hysterectomy [Recovering/Resolving]
  - Abdominal pain [Not Recovered/Not Resolved]
  - Post procedural constipation [Recovered/Resolved]
  - Post procedural diarrhoea [Recovered/Resolved]
  - Colitis ulcerative [Recovered/Resolved]

NARRATIVE: CASE EVENT DATE: 20250401
